FAERS Safety Report 18303994 (Version 1)
Quarter: 2020Q3

REPORT INFORMATION
  Report Type: Report from Study
  Country: TW (occurrence: TW)
  Receive Date: 20200923
  Receipt Date: 20200923
  Transmission Date: 20201103
  Serious: Yes (Death, Hospitalization, Other)
  Sender: FDA-Public Use
  Company Number: TW-JNJFOC-20200920447

PATIENT
  Age: 92 Year
  Sex: Female
  Weight: 56 kg

DRUGS (1)
  1. VENTAVIS [Suspect]
     Active Substance: ILOPROST
     Indication: PULMONARY ARTERIAL HYPERTENSION
     Route: 055
     Dates: start: 20191224

REACTIONS (8)
  - Renal impairment [Recovered/Resolved]
  - Weight decreased [Recovered/Resolved]
  - Choking [Fatal]
  - Blood pH decreased [Fatal]
  - Ischaemia [Unknown]
  - Nasopharyngitis [Recovered/Resolved]
  - Product prescribing issue [Unknown]
  - Pruritus [Not Recovered/Not Resolved]

NARRATIVE: CASE EVENT DATE: 20191224
